FAERS Safety Report 9157429 (Version 4)
Quarter: 2013Q3

REPORT INFORMATION
  Report Type: Spontaneous
  Country: US (occurrence: None)
  Receive Date: 20130308
  Receipt Date: 20130805
  Transmission Date: 20140515
  Serious: Yes (Death)
  Sender: FDA-Public Use
  Company Number: 1302-285

PATIENT
  Age: 78 Year
  Sex: Female

DRUGS (17)
  1. AFLIBERCEPT [Suspect]
     Indication: DIABETIC RETINAL OEDEMA
     Dosage: 2 MG, 1 IN 4 WK, INTRAVITREAL
     Dates: start: 20121115
  2. PROCRIT [Concomitant]
  3. TESSALON (BENZONATE) [Concomitant]
  4. ATORVASTATIN (ATORVASTATIN) [Concomitant]
  5. CLONIDINE (CLONIDINE) [Concomitant]
  6. ULORIC (FEBUXOSTAT) [Concomitant]
  7. FUROSEMIDE (FUROSEMIDE) [Concomitant]
  8. ESTRACE (ESTRADIOL) [Concomitant]
  9. SUCRALFATE (SUCRALFATE) [Concomitant]
  10. CILOSTAZOL (CILOSTAZOL) [Concomitant]
  11. LEVEMIR (INSULIN DETEMIR) [Concomitant]
  12. NITROGLINGUAL SPRAY (GLYCERYL TRINITRATE) [Concomitant]
  13. NITROFURANTOIN [Concomitant]
  14. PLAVIX (CLOPIDOGREL BISULATE) [Concomitant]
  15. CARVEDILOL (CARVEDILOL) [Concomitant]
  16. DIOVAN HCT 300/25 MG (CO-DIOVAN) [Concomitant]
  17. TORSEMIDE [Concomitant]

REACTIONS (13)
  - Cerebral haemorrhage [None]
  - Hypertension [None]
  - Coma [None]
  - Oedema peripheral [None]
  - Brain death [None]
  - Cerebrovascular accident [None]
  - Productive cough [None]
  - Headache [None]
  - Renal disorder [None]
  - Blepharitis [None]
  - Unresponsive to stimuli [None]
  - Neck pain [None]
  - Epistaxis [None]
